FAERS Safety Report 4844576-9 (Version None)
Quarter: 2005Q4

REPORT INFORMATION
  Report Type: 
  Country: None (occurrence: None)
  Receive Date: 20051125
  Receipt Date: 20051116
  Transmission Date: 20060501
  Serious: Yes (Death, Hospitalization)
  Sender: FDA-Public Use
  Company Number: HQWYE581016NOV05

PATIENT
  Age: 39 Year
  Sex: Male

DRUGS (3)
  1. ADVIL [Suspect]
     Indication: MUSCULOSKELETAL PAIN
     Dates: start: 20000520, end: 20000101
  2. MOTRIN [Suspect]
     Indication: MUSCULOSKELETAL PAIN
     Dates: start: 20000520, end: 20000101
  3. ACETAMINOPHEN [Suspect]
     Indication: MUSCULOSKELETAL PAIN
     Dates: start: 20000520, end: 20000101

REACTIONS (13)
  - BLOOD CREATININE INCREASED [None]
  - DRUG HYPERSENSITIVITY [None]
  - HEPATITIS [None]
  - LUNG INFECTION PSEUDOMONAL [None]
  - MULTI-ORGAN FAILURE [None]
  - PNEUMONIA NECROTISING [None]
  - PNEUMONIA STAPHYLOCOCCAL [None]
  - PSEUDOMONAL BACTERAEMIA [None]
  - SEPSIS [None]
  - STAPHYLOCOCCAL BACTERAEMIA [None]
  - STEVENS-JOHNSON SYNDROME [None]
  - THERAPY NON-RESPONDER [None]
  - TOXIC EPIDERMAL NECROLYSIS [None]
